FAERS Safety Report 10399242 (Version 2)
Quarter: 2014Q3

REPORT INFORMATION
  Report Type: Spontaneous
  Country: US (occurrence: None)
  Receive Date: 20130815
  Receipt Date: 20140815
  Transmission Date: 20150326
  Serious: Yes (Hospitalization, Other)
  Sender: FDA-Public Use
  Company Number: ADR-2013-00809

PATIENT
  Age: 13 Year
  Sex: Male

DRUGS (1)
  1. LIORESAL [Suspect]
     Active Substance: BACLOFEN
     Indication: MUSCLE SPASTICITY

REACTIONS (12)
  - Hypopnoea [None]
  - Hypotension [None]
  - Somnolence [None]
  - Heart rate decreased [None]
  - Unresponsive to stimuli [None]
  - Overdose [None]
  - Agitation [None]
  - Coma [None]
  - Muscle spasticity [None]
  - Incorrect route of drug administration [None]
  - Respiratory rate decreased [None]
  - Vomiting [None]

NARRATIVE: CASE EVENT DATE: 20130506
